FAERS Safety Report 19890292 (Version 1)
Quarter: 2021Q3

REPORT INFORMATION
  Report Type: Spontaneous
  Country: US (occurrence: US)
  Receive Date: 20210928
  Receipt Date: 20210928
  Transmission Date: 20211014
  Serious: Yes (Death)
  Sender: FDA-Public Use
  Company Number: None

PATIENT
  Age: 34 Year
  Sex: Female

DRUGS (5)
  1. RITONAVIR. [Suspect]
     Active Substance: RITONAVIR
     Indication: HIV INFECTION
     Route: 048
     Dates: end: 20210814
  2. LAMIVUDINE. [Concomitant]
     Active Substance: LAMIVUDINE
  3. TENOFOVIR [Concomitant]
     Active Substance: TENOFOVIR
  4. ATOVAQUONE. [Concomitant]
     Active Substance: ATOVAQUONE
  5. PREZISTA [Suspect]
     Active Substance: DARUNAVIR ETHANOLATE
     Indication: HIV INFECTION
     Route: 048
     Dates: end: 20210814

REACTIONS (1)
  - Death [None]

NARRATIVE: CASE EVENT DATE: 20210814
